FAERS Safety Report 7926675-8 (Version None)
Quarter: 2011Q4

REPORT INFORMATION
  Report Type: 
  Country: None (occurrence: None)
  Receive Date: 20111118
  Receipt Date: 20111114
  Transmission Date: 20120403
  Serious: No
  Sender: FDA-Public Use
  Company Number: US-PFIZER INC-2011279468

PATIENT
  Sex: Male
  Weight: 88.435 kg

DRUGS (2)
  1. VIAGRA [Suspect]
     Indication: ERECTILE DYSFUNCTION
     Dosage: UNK, ONCE A WEEK
  2. VIAGRA [Suspect]
     Dosage: 100 MG, WEEKLY

REACTIONS (1)
  - DRUG INEFFECTIVE [None]
